FAERS Safety Report 14466470 (Version 4)
Quarter: 2018Q1

REPORT INFORMATION
  Report Type: Spontaneous
  Country: US (occurrence: US)
  Receive Date: 20180131
  Receipt Date: 20180321
  Transmission Date: 20180509
  Serious: Yes (Other)
  Sender: FDA-Public Use
  Company Number: US-AEGERION PHARMACEUTICAL, INC-AEGR003566

PATIENT
  Sex: Female

DRUGS (7)
  1. MYALEPT [Suspect]
     Active Substance: METRELEPTIN
     Dosage: 11.3 MG, UNK
     Route: 058
     Dates: start: 20160623, end: 20171120
  2. MYALEPT [Suspect]
     Active Substance: METRELEPTIN
     Dosage: UNK
     Route: 058
     Dates: end: 201801
  3. SYNTHROID [Concomitant]
     Active Substance: LEVOTHYROXINE SODIUM
     Indication: HYPOTHYROIDISM
  4. LEVEMIR [Concomitant]
     Active Substance: INSULIN DETEMIR
     Indication: DIABETES MELLITUS
  5. SILDENAFIL. [Concomitant]
     Active Substance: SILDENAFIL
     Indication: PULMONARY HYPERTENSION
  6. MYALEPT [Suspect]
     Active Substance: METRELEPTIN
     Indication: LIPODYSTROPHY ACQUIRED
     Dosage: 7.5 MG, QD
     Route: 058
     Dates: start: 201512
  7. HUMALOG [Concomitant]
     Active Substance: INSULIN LISPRO
     Indication: DIABETES MELLITUS

REACTIONS (3)
  - Maternal exposure during pregnancy [Unknown]
  - Unintended pregnancy [Unknown]
  - Carcinoid tumour of the stomach [Unknown]

NARRATIVE: CASE EVENT DATE: 2017
